FAERS Safety Report 5899565-2 (Version None)
Quarter: 2008Q3

REPORT INFORMATION
  Report Type: 
  Country: None (occurrence: None)
  Receive Date: 20080926
  Receipt Date: 20080918
  Transmission Date: 20090109
  Serious: Yes (Hospitalization, Other)
  Sender: FDA-Public Use
  Company Number: PHBS2008NL05789

PATIENT
  Age: 71 Year
  Sex: Male

DRUGS (5)
  1. NEORAL [Suspect]
     Indication: RENAL TRANSPLANT
  2. CELLCEPT [Suspect]
     Indication: RENAL TRANSPLANT
  3. PREDNISOLONE [Suspect]
     Indication: RENAL TRANSPLANT
  4. PROGRAFT [Suspect]
     Indication: RENAL TRANSPLANT
  5. METHYLPREDNISOLONE [Suspect]
     Indication: KIDNEY TRANSPLANT REJECTION

REACTIONS (20)
  - ANGINA PECTORIS [None]
  - ATRIAL FIBRILLATION [None]
  - BLOOD CREATININE INCREASED [None]
  - CARDIAC FAILURE [None]
  - COMPLICATIONS OF TRANSPLANTED KIDNEY [None]
  - CYTOMEGALOVIRUS INFECTION [None]
  - DRUG LEVEL INCREASED [None]
  - ENTEROBACTER INFECTION [None]
  - ENTEROCOCCAL INFECTION [None]
  - HAEMODIALYSIS [None]
  - HYDRONEPHROSIS [None]
  - KIDNEY TRANSPLANT REJECTION [None]
  - NEPHROSTOMY TUBE PLACEMENT [None]
  - PNEUMOCYSTIS JIROVECI PNEUMONIA [None]
  - REMOVAL OF RENAL TRANSPLANT [None]
  - TYPE 2 DIABETES MELLITUS [None]
  - URETERIC CANCER [None]
  - URETERIC OBSTRUCTION [None]
  - URETERIC STENOSIS [None]
  - URINARY TRACT INFECTION [None]
